FAERS Safety Report 13614751 (Version 3)
Quarter: 2017Q4

REPORT INFORMATION
  Report Type: Spontaneous
  Country: US (occurrence: US)
  Receive Date: 20170606
  Receipt Date: 20171106
  Transmission Date: 20180320
  Serious: No
  Sender: FDA-Public Use
  Company Number: US-GLAXOSMITHKLINE-US2017GSK085942

PATIENT
  Sex: Female

DRUGS (3)
  1. EMSAM [Concomitant]
     Active Substance: SELEGILINE
  2. OMEGA-3-ACID ETHYL ESTERS CAPSULE [Suspect]
     Active Substance: OMEGA-3-ACID ETHYL ESTERS
     Indication: DEPRESSION
     Dosage: 2 G, BID
     Route: 048
     Dates: end: 201705
  3. LOVAZA [Suspect]
     Active Substance: OMEGA-3-ACID ETHYL ESTERS
     Indication: DEPRESSION
     Dosage: 2 G, BID
     Route: 048

REACTIONS (6)
  - Therapeutic response unexpected [Unknown]
  - Drug ineffective for unapproved indication [Unknown]
  - Intercepted drug administration error [Unknown]
  - Off label use [Unknown]
  - Depression [Recovering/Resolving]
  - Drug dose omission [Unknown]
